FAERS Safety Report 9447920 (Version 1)
Quarter: 2013Q3

REPORT INFORMATION
  Report Type: Report from Study
  Country: US (occurrence: US)
  Receive Date: 20130808
  Receipt Date: 20130808
  Transmission Date: 20140515
  Serious: No
  Sender: FDA-Public Use
  Company Number: PHEH2013US016735

PATIENT
  Age: 52 Year
  Sex: Female

DRUGS (2)
  1. TASIGNA [Suspect]
     Dosage: 150 MG, QHS
     Route: 048
     Dates: start: 20130319
  2. OMEPRAZOLE [Concomitant]

REACTIONS (2)
  - Fatigue [Unknown]
  - Rectal haemorrhage [Unknown]
